FAERS Safety Report 16074830 (Version 2)
Quarter: 2019Q3

REPORT INFORMATION
  Report Type: Report from Study
  Country: CA (occurrence: CA)
  Receive Date: 20190314
  Receipt Date: 20190902
  Transmission Date: 20191004
  Serious: Yes (Other)
  Sender: FDA-Public Use
  Company Number: PHHY2018CA018230

PATIENT
  Sex: Female

DRUGS (4)
  1. FOLIC ACID. [Concomitant]
     Active Substance: FOLIC ACID
     Indication: PRODUCT USED FOR UNKNOWN INDICATION
     Route: 065
  2. JADENU [Suspect]
     Active Substance: DEFERASIROX
     Dosage: 540 MG, QD (STRENGTH 360 MG, 180 MG)
     Route: 048
  3. JADENU [Suspect]
     Active Substance: DEFERASIROX
     Indication: THALASSAEMIA
     Dosage: 360 MG, QD
     Route: 048
     Dates: start: 20180528
  4. MULTIVITAMINS [Concomitant]
     Active Substance: VITAMINS
     Indication: PRODUCT USED FOR UNKNOWN INDICATION
     Route: 065

REACTIONS (8)
  - Pulmonary hypertension [Unknown]
  - Fatigue [Unknown]
  - Pleural effusion [Unknown]
  - Somnolence [Not Recovered/Not Resolved]
  - Serum ferritin decreased [Recovered/Resolved]
  - Decreased appetite [Unknown]
  - Drug ineffective [Unknown]
  - Asthenia [Unknown]

NARRATIVE: CASE EVENT DATE: 2018
